FAERS Safety Report 9819001 (Version 2)
Quarter: 2014Q1

REPORT INFORMATION
  Report Type: Spontaneous
  Country: IT (occurrence: None)
  Receive Date: 20140113
  Receipt Date: 20140314
  Transmission Date: 20141002
  Serious: Yes (Hospitalization, Other)
  Sender: FDA-Public Use
  Company Number: AUR-APL-2014-00254

PATIENT
  Age: 76 Year
  Sex: Female

DRUGS (4)
  1. IRBESARTAN [Suspect]
     Indication: PRODUCT USED FOR UNKNOWN INDICATION
     Dosage: 150MG, 1 D), ORAL
     Route: 048
     Dates: start: 20121004, end: 20131003
  2. DEPARKIN CHRONO (VALPROATE SODIUM) [Concomitant]
  3. GARDENALE (PHENOBARBITAL) [Concomitant]
  4. BRUFEN (IBUPROFEN) [Concomitant]

REACTIONS (1)
  - Syncope [None]
